FAERS Safety Report 7492850-2 (Version None)
Quarter: 2011Q2

REPORT INFORMATION
  Report Type: 
  Country: None (occurrence: None)
  Receive Date: 20110520
  Receipt Date: 20110506
  Transmission Date: 20111010
  Serious: Yes (Hospitalization, Disabling)
  Sender: FDA-Public Use
  Company Number: FR-RANBAXY-2011RR-44456

PATIENT
  Age: 79 Year
  Sex: Male

DRUGS (9)
  1. CORDARONE [Concomitant]
  2. AMLODIPINE BESYLATE [Concomitant]
  3. ASPIRIN [Concomitant]
  4. PREDNISOLONE [Suspect]
     Indication: LUNG DISORDER
     Dosage: 20 MG, QD
     Route: 048
     Dates: start: 20110222, end: 20110225
  5. AMOXICILLIN AND CLAVULANATE POTASSIUM [Suspect]
     Dosage: UNK
     Dates: start: 20110228, end: 20110310
  6. LASIX [Concomitant]
  7. LEVOFLOXACIN [Suspect]
     Indication: LUNG DISORDER
     Dosage: 500 MG, BID
     Route: 048
     Dates: start: 20110218, end: 20110225
  8. AMOXICILLIN AND CLAVULANATE POTASSIUM [Suspect]
     Indication: LUNG DISORDER
     Dosage: 1 G, TID
     Route: 048
     Dates: start: 20110217, end: 20110225
  9. BIPRETERAX [Concomitant]

REACTIONS (2)
  - DRUG INTERACTION [None]
  - TENDON RUPTURE [None]
